FAERS Safety Report 7433575-9 (Version None)
Quarter: 2011Q2

REPORT INFORMATION
  Report Type: 
  Country: None (occurrence: None)
  Receive Date: 20110422
  Receipt Date: 20110412
  Transmission Date: 20111010
  Serious: Yes (Other)
  Sender: FDA-Public Use
  Company Number: US-WATSON-2011-05170

PATIENT
  Sex: Male

DRUGS (1)
  1. RAPAFLO [Suspect]
     Indication: DYSURIA
     Dosage: ONE CAPSULE DAILY
     Route: 048
     Dates: start: 20090730, end: 20101015

REACTIONS (6)
  - LOCAL SWELLING [None]
  - ANGIOEDEMA [None]
  - SWOLLEN TONGUE [None]
  - DYSPNOEA [None]
  - PHARYNGEAL OEDEMA [None]
  - SWELLING FACE [None]
